FAERS Safety Report 8481457-6 (Version None)
Quarter: 2012Q3

REPORT INFORMATION
  Report Type: 
  Country: None (occurrence: None)
  Receive Date: 20120702
  Receipt Date: 20120621
  Transmission Date: 20120928
  Serious: Yes (Other)
  Sender: FDA-Public Use
  Company Number: US-ASTRAZENECA-2012SE42030

PATIENT
  Age: 73 Year
  Sex: Male
  Weight: 77.1 kg

DRUGS (2)
  1. NEXIUM [Suspect]
     Route: 048
  2. LISINOPRIL [Suspect]
     Indication: AORTIC VALVE INCOMPETENCE
     Route: 048
     Dates: start: 20100101

REACTIONS (3)
  - COUGH [None]
  - CHRONIC LYMPHOCYTIC LEUKAEMIA [None]
  - OFF LABEL USE [None]
